FAERS Safety Report 15740236 (Version 1)
Quarter: 2018Q4

REPORT INFORMATION
  Report Type: Spontaneous
  Country: US (occurrence: US)
  Receive Date: 20181219
  Receipt Date: 20181219
  Transmission Date: 20190205
  Serious: No
  Sender: FDA-Public Use
  Company Number: None

PATIENT
  Age: 31 Year
  Sex: Female
  Weight: 111.6 kg

DRUGS (1)
  1. PREDNISONE TABLETS, USP 5 MG UNIT OF USE NDC 0603-5337-15 [Suspect]
     Active Substance: PREDNISONE
     Indication: PHARYNGITIS STREPTOCOCCAL
     Dosage: ?          QUANTITY:21 TABLET(S);OTHER FREQUENCY:TAPERS BY DAY;?
     Route: 048
     Dates: start: 20181218, end: 20181218

REACTIONS (3)
  - Pruritus generalised [None]
  - Muscle spasms [None]
  - Myalgia [None]

NARRATIVE: CASE EVENT DATE: 20181218
